FAERS Safety Report 11137341 (Version 2)
Quarter: 2015Q3

REPORT INFORMATION
  Report Type: Spontaneous
  Country: JP (occurrence: JP)
  Receive Date: 20150525
  Receipt Date: 20150825
  Transmission Date: 20151125
  Serious: Yes (Other)
  Sender: FDA-Public Use
  Company Number: JP-009507513-1505JPN008360

PATIENT
  Age: 95 Year
  Sex: Male

DRUGS (4)
  1. STROMECTOL [Suspect]
     Active Substance: IVERMECTIN
     Dosage: 9 MG DAILY
     Route: 048
     Dates: start: 20150304, end: 20150304
  2. SAWACILLIN [Concomitant]
     Active Substance: AMOXICILLIN
     Dosage: DAILY DOSE UNKNOWN
     Route: 048
  3. STROMECTOL [Suspect]
     Active Substance: IVERMECTIN
     Dosage: 9 MG DAILY
     Route: 048
     Dates: start: 20150226, end: 20150226
  4. STROMECTOL [Suspect]
     Active Substance: IVERMECTIN
     Indication: ACARODERMATITIS
     Dosage: 9 MG DAILY
     Route: 048
     Dates: start: 20150219, end: 20150219

REACTIONS (1)
  - Jaundice [Recovered/Resolved]

NARRATIVE: CASE EVENT DATE: 20150318
